FAERS Safety Report 22656039 (Version 1)
Quarter: 2023Q2

REPORT INFORMATION
  Report Type: Spontaneous
  Country: US (occurrence: US)
  Receive Date: 20230629
  Receipt Date: 20230629
  Transmission Date: 20230722
  Serious: No
  Sender: FDA-Public Use
  Company Number: US-NKFPHARMA-2023MPSPO00065

PATIENT

DRUGS (3)
  1. HEPARIN SODIUM [Suspect]
     Active Substance: HEPARIN SODIUM
     Indication: Product used for unknown indication
     Route: 065
     Dates: start: 20230410
  2. HEPARIN SODIUM [Suspect]
     Active Substance: HEPARIN SODIUM
     Dosage: 30,000 IU AND ADDITIONAL 20,000 IU
     Route: 065
     Dates: start: 20230410
  3. HEPARIN SODIUM [Suspect]
     Active Substance: HEPARIN SODIUM
     Dosage: F 30,000 IU AND ADDTION OF 20000 UNITS AND FURTHER ADDITION OF 30 000UNITS
     Route: 065
     Dates: start: 20230410

REACTIONS (1)
  - Therapeutic product effect incomplete [Unknown]
